FAERS Safety Report 14332242 (Version 2)
Quarter: 2018Q1

REPORT INFORMATION
  Report Type: Spontaneous
  Country: IT (occurrence: IT)
  Receive Date: 20171228
  Receipt Date: 20180307
  Transmission Date: 20180509
  Serious: Yes (Hospitalization)
  Sender: FDA-Public Use
  Company Number: IT-PFIZER INC-2017545979

PATIENT
  Age: 19 Year
  Sex: Female

DRUGS (1)
  1. TAVOR (LORAZEPAM) [Suspect]
     Active Substance: LORAZEPAM
     Dosage: 19 MG, TOTAL
     Route: 048
     Dates: start: 20171122, end: 20171122

REACTIONS (3)
  - Suicide attempt [Recovering/Resolving]
  - Sopor [Recovering/Resolving]
  - Drug abuse [Unknown]

NARRATIVE: CASE EVENT DATE: 20171122
